FAERS Safety Report 9334360 (Version 1)
Quarter: 2013Q2

REPORT INFORMATION
  Report Type: Spontaneous
  Country: US (occurrence: US)
  Receive Date: 20130606
  Receipt Date: 20130606
  Transmission Date: 20140414
  Serious: No
  Sender: FDA-Public Use
  Company Number: US-AMGEN-USASP2013027930

PATIENT
  Age: 59 Year
  Sex: Female

DRUGS (3)
  1. PROLIA [Suspect]
     Indication: OSTEOPOROSIS POSTMENOPAUSAL
     Dosage: UNK
     Dates: start: 20130309
  2. VITAMIN D                          /00318501/ [Concomitant]
  3. CALCIUM [Concomitant]

REACTIONS (3)
  - Toothache [Unknown]
  - Headache [Unknown]
  - Arthralgia [Unknown]
